FAERS Safety Report 7337226-3 (Version None)
Quarter: 2011Q1

REPORT INFORMATION
  Report Type: 
  Country: None (occurrence: None)
  Receive Date: 20110308
  Receipt Date: 20110302
  Transmission Date: 20110831
  Serious: No
  Sender: FDA-Public Use
  Company Number: US-PFIZER INC-2011046676

PATIENT
  Sex: Male

DRUGS (2)
  1. DETROL LA [Suspect]
     Indication: HYPERTONIC BLADDER
     Dosage: 4 MG, 1X/DAY
     Route: 048
     Dates: start: 20110225
  2. AZITHROMYCIN [Concomitant]
     Indication: EAR INFECTION
     Dosage: UNK

REACTIONS (4)
  - ABDOMINAL PAIN UPPER [None]
  - NAUSEA [None]
  - POLLAKIURIA [None]
  - DRY MOUTH [None]
